FAERS Safety Report 7268599-8 (Version None)
Quarter: 2011Q1

REPORT INFORMATION
  Report Type: 
  Country: None (occurrence: None)
  Receive Date: 20110201
  Receipt Date: 20101221
  Transmission Date: 20110831
  Serious: Yes (Hospitalization)
  Sender: FDA-Public Use
  Company Number: US-BAYER-200942901NA

PATIENT
  Sex: Female
  Weight: 72 kg

DRUGS (7)
  1. BENADRYL [Concomitant]
     Dates: start: 20081101
  2. YAZ [Suspect]
     Indication: MENSTRUAL DISORDER
     Dosage: 1 DF (DAILY DOSE), QD, ORAL
     Route: 048
     Dates: start: 20070625, end: 20080123
  3. YAZ [Suspect]
     Indication: MOOD SWINGS
  4. ANTIBIOTICS [Concomitant]
     Dates: start: 20000101
  5. ZYRTEC [Concomitant]
     Dates: start: 20081101
  6. NSAID'S [Concomitant]
     Dates: start: 20000101
  7. ZOCOR [Concomitant]
     Dates: start: 20081101

REACTIONS (12)
  - NAUSEA [None]
  - CHOLECYSTITIS CHRONIC [None]
  - BILIARY DYSKINESIA [None]
  - ABDOMINAL PAIN UPPER [None]
  - BILIARY COLIC [None]
  - HYPOAESTHESIA [None]
  - CEREBROVASCULAR ACCIDENT [None]
  - VERTEBRAL ARTERY OCCLUSION [None]
  - HEADACHE [None]
  - VOMITING [None]
  - FACIAL PAIN [None]
  - CEREBRAL ISCHAEMIA [None]
